FAERS Safety Report 6996310-4 (Version None)
Quarter: 2010Q3

REPORT INFORMATION
  Report Type: 
  Country: None (occurrence: None)
  Receive Date: 20100918
  Receipt Date: 20090129
  Transmission Date: 20110219
  Serious: No
  Sender: FDA-Public Use
  Company Number: US-WYE-H08008309

PATIENT
  Sex: Male

DRUGS (14)
  1. EFFEXOR [Suspect]
     Indication: PAIN
     Route: 048
  2. ACETYLSALICYLIC ACID [Concomitant]
  3. MUCINEX [Concomitant]
  4. SYNTHROID [Concomitant]
  5. PRILOSEC [Concomitant]
  6. ANDROGEL [Concomitant]
  7. CELEBREX [Concomitant]
  8. LYRICA [Concomitant]
  9. TRICOR [Concomitant]
  10. NORFLEX [Concomitant]
  11. STRATTERA [Concomitant]
  12. AMBIEN [Concomitant]
  13. ORAMORPH SR [Concomitant]
  14. ZEGERID [Concomitant]

REACTIONS (1)
  - DRUG SCREEN FALSE POSITIVE [None]
